FAERS Safety Report 15441212 (Version 1)
Quarter: 2018Q4

REPORT INFORMATION
  Report Type: Report from Study
  Country: ES (occurrence: ES)
  Receive Date: 20180928
  Receipt Date: 20180928
  Transmission Date: 20190204
  Serious: Yes (Hospitalization)
  Sender: FDA-Public Use
  Company Number: ES-TEVA-2018-ES-959209

PATIENT
  Age: 90 Year
  Sex: Female

DRUGS (4)
  1. ESPIRONOLACTONA (326A) [Suspect]
     Active Substance: SPIRONOLACTONE
     Dosage: 25 MILLIGRAM DAILY;
     Route: 048
     Dates: start: 20131112, end: 20170829
  2. ATORVASTATINA (7400A) [Concomitant]
     Active Substance: ATORVASTATIN
     Indication: HYPERCHOLESTEROLAEMIA
     Dosage: 20MG CADA 24 HORAS
     Route: 048
     Dates: start: 20170304
  3. PARACETAMOL (12A) [Concomitant]
     Active Substance: ACETAMINOPHEN
     Indication: PAIN
     Dosage: 1000MG CADA 12 HORAS
     Route: 048
     Dates: start: 20091005
  4. TELMISARTAN (1099A) [Suspect]
     Active Substance: TELMISARTAN
     Indication: HYPERTENSION
     Dosage: 80MG 1/2-0-1/2
     Route: 048
     Dates: start: 20120606, end: 20170829

REACTIONS (2)
  - Condition aggravated [Unknown]
  - Renal failure [Unknown]

NARRATIVE: CASE EVENT DATE: 20170828
